FAERS Safety Report 6338793-9 (Version None)
Quarter: 2009Q3

REPORT INFORMATION
  Report Type: 
  Country: None (occurrence: None)
  Receive Date: 20090903
  Receipt Date: 20090831
  Transmission Date: 20100115
  Serious: Yes (Other)
  Sender: FDA-Public Use
  Company Number: ZA-JNJFOC-20090707531

PATIENT
  Age: 37 Year
  Sex: Female
  Weight: 46 kg

DRUGS (2)
  1. TOPAMAX [Suspect]
     Indication: EPILEPSY
     Dosage: 100 MG EACH ONE IN THE MORNING AND ONE IN THE EVENING
     Route: 065
  2. DEGRANOL [Suspect]
     Indication: EPILEPSY
     Route: 065

REACTIONS (9)
  - ASTHENIA [None]
  - BLOOD DISORDER [None]
  - DYSARTHRIA [None]
  - DYSKINESIA [None]
  - DYSPHAGIA [None]
  - MUSCULAR WEAKNESS [None]
  - MYASTHENIA GRAVIS [None]
  - SALIVA ALTERED [None]
  - WEIGHT DECREASED [None]
